FAERS Safety Report 20170992 (Version 2)
Quarter: 2021Q4

REPORT INFORMATION
  Report Type: Report from Study
  Country: CO (occurrence: None)
  Receive Date: 20211210
  Receipt Date: 20211215
  Transmission Date: 20220303
  Serious: Yes (Death, Other)
  Sender: FDA-Public Use
  Company Number: 2021A867274

PATIENT
  Age: 20323 Day
  Sex: Female
  Weight: 45 kg

DRUGS (1)
  1. LYNPARZA [Suspect]
     Active Substance: OLAPARIB
     Indication: Ovarian cancer
     Route: 048
     Dates: start: 20211110, end: 20211204

REACTIONS (2)
  - Death [Fatal]
  - Product prescribing issue [Fatal]

NARRATIVE: CASE EVENT DATE: 20211110
